FAERS Safety Report 6051460-4 (Version None)
Quarter: 2009Q1

REPORT INFORMATION
  Report Type: 
  Country: None (occurrence: None)
  Receive Date: 20090126
  Receipt Date: 20090116
  Transmission Date: 20090719
  Serious: Yes (Hospitalization)
  Sender: FDA-Public Use
  Company Number: A0709956A

PATIENT
  Age: 56 Year
  Sex: Male
  Weight: 102.3 kg

DRUGS (5)
  1. AVANDIA [Suspect]
     Dosage: 4MG PER DAY
     Route: 048
     Dates: start: 20050527, end: 20070501
  2. AVANDAMET [Suspect]
     Route: 048
     Dates: start: 20050425, end: 20050501
  3. METFORMIN [Concomitant]
     Dates: start: 20050527
  4. GLIPIZIDE [Concomitant]
     Dates: start: 20030521
  5. KLOR-CON [Concomitant]

REACTIONS (3)
  - CARDIAC FAILURE CONGESTIVE [None]
  - MYOCARDIAL INFARCTION [None]
  - PAIN [None]
